FAERS Safety Report 5320108-6 (Version None)
Quarter: 2007Q2

REPORT INFORMATION
  Report Type: 
  Country: None (occurrence: None)
  Receive Date: 20070509
  Receipt Date: 20070503
  Transmission Date: 20071010
  Serious: Yes (Death)
  Sender: FDA-Public Use
  Company Number: HU-GENENTECH-224276

PATIENT
  Sex: Female
  Weight: 66 kg

DRUGS (19)
  1. RITUXIMAB [Suspect]
     Indication: CHRONIC LYMPHOCYTIC LEUKAEMIA
     Dosage: 700 MG, Q28D
     Route: 042
     Dates: start: 20060411, end: 20060411
  2. FLUDARABINE [Suspect]
     Indication: CHRONIC LYMPHOCYTIC LEUKAEMIA
     Dosage: 40 MG, Q28D
     Route: 042
     Dates: start: 20060412, end: 20060414
  3. CYCLOPHOSPHAMIDE [Suspect]
     Indication: CHRONIC LYMPHOCYTIC LEUKAEMIA
     Dosage: 400 MG, Q28D
     Route: 042
     Dates: start: 20060412, end: 20060414
  4. SUMETROLIM [Concomitant]
     Indication: PROPHYLAXIS
     Dosage: 1920 MG, UNK
     Dates: start: 20060404, end: 20060417
  5. QUAMATEL [Concomitant]
     Indication: PREMEDICATION
     Dosage: 40 MG, UNK
     Dates: start: 20060404, end: 20060410
  6. QUAMATEL [Concomitant]
     Dosage: 80 MG, UNK
     Dates: start: 20060411, end: 20060417
  7. ONDANSETRON [Concomitant]
     Indication: PROPHYLAXIS
     Dosage: 8 MG, UNK
     Dates: start: 20060412, end: 20060414
  8. ACICLOVIRUM [Concomitant]
     Indication: PROPHYLAXIS
     Dosage: 800 MG, UNK
     Dates: start: 20060415, end: 20060417
  9. METHYLPREDNISOLONE 16MG TAB [Concomitant]
     Indication: PREMEDICATION
     Dosage: 16 MG, UNK
     Dates: start: 20060403, end: 20060410
  10. METHYLPREDNISOLONE 16MG TAB [Concomitant]
     Dosage: 40 MG, UNK
     Dates: start: 20060411, end: 20060412
  11. METHYLPREDNISOLONE 16MG TAB [Concomitant]
     Dosage: 80 MG, UNK
     Dates: start: 20060413, end: 20060414
  12. METHYLPREDNISOLONE 16MG TAB [Concomitant]
     Dosage: 60 MG, UNK
     Dates: start: 20060415, end: 20060415
  13. METHYLPREDNISOLONE 16MG TAB [Concomitant]
     Dosage: 48 MG, UNK
     Dates: start: 20060416, end: 20060417
  14. CLOPAMID [Concomitant]
     Indication: DRUG USE FOR UNKNOWN INDICATION
     Dosage: 20 MG, UNK
     Dates: start: 20060403, end: 20060410
  15. ALLOPURINOL [Concomitant]
     Indication: PROPHYLAXIS
     Dosage: 300 MG, UNK
     Dates: start: 20060403, end: 20060410
  16. ALLOPURINOL [Concomitant]
     Dosage: 300 MG, QD
     Dates: start: 20060411
  17. KALIUM [Concomitant]
     Indication: PROPHYLAXIS
     Dosage: 315 MG, UNK
     Dates: start: 20060403, end: 20060403
  18. KALIUM [Concomitant]
     Dosage: 630 MG, UNK
     Dates: start: 20060404, end: 20060417
  19. CLEMASTINUM [Concomitant]
     Indication: PROPHYLAXIS
     Dosage: 2 MG, UNK
     Dates: start: 20060411, end: 20060411

REACTIONS (5)
  - ACUTE MYOCARDIAL INFARCTION [None]
  - CARDIAC FAILURE [None]
  - EMBOLISM [None]
  - HAEMOLYSIS [None]
  - TUMOUR LYSIS SYNDROME [None]
